FAERS Safety Report 18172417 (Version 1)
Quarter: 2020Q3

REPORT INFORMATION
  Report Type: Spontaneous
  Country: US (occurrence: US)
  Receive Date: 20200819
  Receipt Date: 20200819
  Transmission Date: 20201103
  Serious: Yes (Other)
  Sender: FDA-Public Use
  Company Number: US-BAYER-2020-171147

PATIENT
  Sex: Female

DRUGS (5)
  1. FLECTOR [DICLOFENAC SODIUM] [Concomitant]
     Active Substance: DICLOFENAC SODIUM
     Indication: PAIN
     Dosage: 1.23 OR 1.32MG SHE THINKS, CHANGE PATCH EVERY 12 HOUR
  2. DUROGESIC [Concomitant]
     Active Substance: FENTANYL
     Indication: PAIN
  3. ENTOCORT [Concomitant]
     Active Substance: BUDESONIDE
  4. ZEGERID OTC CAPSULES [Concomitant]
     Active Substance: OMEPRAZOLE\SODIUM BICARBONATE
     Indication: GASTROOESOPHAGEAL REFLUX DISEASE
     Dosage: 1 DF, QD
     Route: 048
  5. ASPIRIN (PAIN AND FEVER) [Suspect]
     Active Substance: ASPIRIN
     Dosage: UNK

REACTIONS (3)
  - Haematochezia [None]
  - Urine odour abnormal [None]
  - Back pain [None]
